FAERS Safety Report 8036267-0 (Version None)
Quarter: 2012Q1

REPORT INFORMATION
  Report Type: 
  Country: None (occurrence: None)
  Receive Date: 20120111
  Receipt Date: 20120106
  Transmission Date: 20120608
  Serious: Yes (Other)
  Sender: FDA-Public Use
  Company Number: PHEH2007US09955

PATIENT
  Sex: Female
  Weight: 92.971 kg

DRUGS (13)
  1. ZOFRAN [Concomitant]
  2. ZOCOR [Concomitant]
  3. DECADRON [Concomitant]
  4. FEMARA [Concomitant]
  5. CARBOPLATIN [Concomitant]
  6. CALCIUM ACETATE [Concomitant]
     Dosage: 1000 MG, QD
  7. ZOMETA [Suspect]
     Indication: BREAST CANCER
     Dosage: 4 MG,
  8. ATIVAN [Concomitant]
  9. RHINOCORT [Concomitant]
  10. CENTRUM [Concomitant]
     Dosage: 1 DF, QD
  11. BENADRYL [Concomitant]
  12. ALLEGRA [Concomitant]
  13. PREMARIN [Concomitant]
     Dosage: 0.625 MG, QD

REACTIONS (67)
  - BONE DISORDER [None]
  - LIFE EXPECTANCY SHORTENED [None]
  - OEDEMA PERIPHERAL [None]
  - ANAEMIA [None]
  - BACK PAIN [None]
  - DYSKINESIA [None]
  - SPINAL OSTEOARTHRITIS [None]
  - ORAL DISORDER [None]
  - PYREXIA [None]
  - RHINORRHOEA [None]
  - OROPHARYNGEAL PAIN [None]
  - CONTUSION [None]
  - METASTASES TO BONE [None]
  - ATELECTASIS [None]
  - RIB FRACTURE [None]
  - INFECTION [None]
  - PERIODONTITIS [None]
  - APPENDICITIS [None]
  - JOINT EFFUSION [None]
  - BONE LOSS [None]
  - PAIN [None]
  - ANXIETY [None]
  - METASTASES TO LIVER [None]
  - VOMITING [None]
  - DEEP VEIN THROMBOSIS [None]
  - DISCOMFORT [None]
  - ARTHRALGIA [None]
  - DYSPONESIS [None]
  - UPPER-AIRWAY COUGH SYNDROME [None]
  - VISION BLURRED [None]
  - FATIGUE [None]
  - PLEURAL EFFUSION [None]
  - DEVICE MALFUNCTION [None]
  - DEFORMITY [None]
  - EMOTIONAL DISTRESS [None]
  - LYMPHADENOPATHY [None]
  - BONE LESION [None]
  - EPISTAXIS [None]
  - DYSPHAGIA [None]
  - DYSPHONIA [None]
  - CONFUSIONAL STATE [None]
  - LUNG INFILTRATION [None]
  - VASOGENIC CEREBRAL OEDEMA [None]
  - GENERAL PHYSICAL HEALTH DETERIORATION [None]
  - OSTEONECROSIS OF JAW [None]
  - BONE EROSION [None]
  - HYPOPHAGIA [None]
  - AUTONOMIC NERVOUS SYSTEM IMBALANCE [None]
  - DIVERTICULUM INTESTINAL [None]
  - SPLENOMEGALY [None]
  - ORAL PAIN [None]
  - MEASLES [None]
  - BLOOD CHOLESTEROL INCREASED [None]
  - GALLBLADDER DISORDER [None]
  - ASCITES [None]
  - METASTASES TO LUNG [None]
  - PATHOLOGICAL FRACTURE [None]
  - ABDOMINAL PAIN [None]
  - INCREASED TENDENCY TO BRUISE [None]
  - ANHEDONIA [None]
  - METASTASES TO CENTRAL NERVOUS SYSTEM [None]
  - LOOSE TOOTH [None]
  - EXPOSED BONE IN JAW [None]
  - PRIMARY SEQUESTRUM [None]
  - SINUS HEADACHE [None]
  - EAR PAIN [None]
  - RHINITIS ALLERGIC [None]
